FAERS Safety Report 25517511 (Version 1)
Quarter: 2025Q3

REPORT INFORMATION
  Report Type: Other
  Country: CH (occurrence: CH)
  Receive Date: 20250704
  Receipt Date: 20250704
  Transmission Date: 20251021
  Serious: Yes (Hospitalization, Other)
  Sender: ANI
  Company Number: CH-ANIPHARMA-023398

PATIENT
  Age: 20 Year
  Sex: Male

DRUGS (19)
  1. LORAZEPAM [Suspect]
     Active Substance: LORAZEPAM
     Indication: Autism spectrum disorder
  2. RISPERIDONE [Suspect]
     Active Substance: RISPERIDONE
     Indication: Behaviour disorder
  3. GUANFACINE [Concomitant]
     Active Substance: GUANFACINE
     Indication: Autism spectrum disorder
  4. LEVOMEPROMAZINE [Concomitant]
     Active Substance: LEVOMEPROMAZINE
     Indication: Autism spectrum disorder
  5. DIPHENHYDRAMINE [Concomitant]
     Active Substance: DIPHENHYDRAMINE
     Indication: Autism spectrum disorder
  6. BIPERIDEN [Concomitant]
     Active Substance: BIPERIDEN
     Indication: Autism spectrum disorder
  7. DOXYLAMINE [Concomitant]
     Active Substance: DOXYLAMINE
     Indication: Autism spectrum disorder
  8. CLOZAPINE [Concomitant]
     Active Substance: CLOZAPINE
     Indication: Psychotic disorder
  9. MIRTAZAPINE [Concomitant]
     Active Substance: MIRTAZAPINE
     Indication: Product used for unknown indication
  10. DIAZEPAM [Concomitant]
     Active Substance: DIAZEPAM
     Indication: Product used for unknown indication
  11. POLYETHYLENE GLYCOL [Concomitant]
     Active Substance: POLYETHYLENE GLYCOL
     Indication: Product used for unknown indication
  12. PRUCALOPRIDE [Concomitant]
     Active Substance: PRUCALOPRIDE
     Indication: Product used for unknown indication
  13. DOXYLAMINE [Concomitant]
     Active Substance: DOXYLAMINE
     Indication: Behaviour disorder
  14. BIPERIDEN [Concomitant]
     Active Substance: BIPERIDEN
     Indication: Behaviour disorder
  15. DIPHENHYDRAMINE [Concomitant]
     Active Substance: DIPHENHYDRAMINE
     Indication: Behaviour disorder
  16. LEVOMEPROMAZINE [Concomitant]
     Active Substance: LEVOMEPROMAZINE
     Indication: Behaviour disorder
  17. GUANFACINE [Concomitant]
     Active Substance: GUANFACINE
     Indication: Behaviour disorder
  18. LORAZEPAM [Suspect]
     Active Substance: LORAZEPAM
     Indication: Behaviour disorder
  19. CLOZAPINE [Concomitant]
     Active Substance: CLOZAPINE
     Indication: Psychotic disorder

REACTIONS (1)
  - Urinary retention [Recovered/Resolved]
